FAERS Safety Report 21770894 (Version 1)
Quarter: 2022Q4

REPORT INFORMATION
  Report Type: Report from Study
  Country: US (occurrence: US)
  Receive Date: 20221223
  Receipt Date: 20221223
  Transmission Date: 20230113
  Serious: No
  Sender: FDA-Public Use
  Company Number: US-ABBVIE-4245114

PATIENT
  Sex: Male

DRUGS (1)
  1. SKYRIZI [Suspect]
     Active Substance: RISANKIZUMAB-RZAA
     Indication: Psoriasis
     Dosage: 20 DEC 2022 DRUG START DATE
     Route: 058

REACTIONS (4)
  - Injection site bruising [Unknown]
  - Psoriasis [Unknown]
  - Diabetes mellitus [Unknown]
  - Incorrect dose administered [Not Recovered/Not Resolved]
